FAERS Safety Report 11102601 (Version 5)
Quarter: 2015Q2

REPORT INFORMATION
  Report Type: Spontaneous
  Country: US (occurrence: US)
  Receive Date: 20150511
  Receipt Date: 20150529
  Transmission Date: 20150821
  Serious: Yes (Other)
  Sender: FDA-Public Use
  Company Number: US-SUN PHARMACEUTICAL INDUSTRIES LTD-2015US-96951

PATIENT
  Sex: Female

DRUGS (3)
  1. VALSARTAN. [Suspect]
     Active Substance: VALSARTAN
     Indication: HYPERTENSION
     Dosage: 80 MG, BID
     Route: 065
  2. DIOVAN [Suspect]
     Active Substance: VALSARTAN
     Indication: PRODUCT USED FOR UNKNOWN INDICATION
     Route: 065
  3. VALSARTAN. [Suspect]
     Active Substance: VALSARTAN
     Indication: PRODUCT USED FOR UNKNOWN INDICATION
     Dosage: UNK
     Route: 065

REACTIONS (19)
  - Pruritus generalised [Unknown]
  - Gait disturbance [Unknown]
  - Abdominal distension [Unknown]
  - Movement disorder [Unknown]
  - Malaise [Unknown]
  - Abasia [Unknown]
  - Vision blurred [Unknown]
  - Tachycardia [Unknown]
  - Weight increased [Unknown]
  - Cardiac disorder [Unknown]
  - Sneezing [Unknown]
  - Abnormal sensation in eye [Unknown]
  - Dizziness [Unknown]
  - Chest pain [Unknown]
  - Platelet count decreased [Unknown]
  - Drug hypersensitivity [Unknown]
  - Myalgia [Unknown]
  - Lupus-like syndrome [Unknown]
  - Autoimmune disorder [Unknown]
